FAERS Safety Report 18173157 (Version 1)
Quarter: 2020Q3

REPORT INFORMATION
  Report Type: Spontaneous
  Country: US (occurrence: US)
  Receive Date: 20200820
  Receipt Date: 20200820
  Transmission Date: 20201103
  Serious: Yes (Other)
  Sender: FDA-Public Use
  Company Number: US-AUROBINDO-AUR-APL-2020-040489

PATIENT
  Age: 27 Year
  Sex: Male

DRUGS (4)
  1. MIRTAZAPINE. [Suspect]
     Active Substance: MIRTAZAPINE
     Indication: JC VIRUS INFECTION
     Dosage: 30 MILLIGRAM, DAILY
     Route: 065
     Dates: start: 20170807
  2. MEFLOQUINE [Suspect]
     Active Substance: MEFLOQUINE
     Indication: JC VIRUS INFECTION
     Dosage: 250 MILLIGRAM, DAILY
     Route: 065
     Dates: start: 20170807
  3. MEFLOQUINE [Suspect]
     Active Substance: MEFLOQUINE
     Indication: PROGRESSIVE MULTIFOCAL LEUKOENCEPHALOPATHY
     Dosage: 250 MILLIGRAM, EVERY WEEK
     Route: 065
     Dates: start: 20170807
  4. MIRTAZAPINE. [Suspect]
     Active Substance: MIRTAZAPINE
     Indication: PROGRESSIVE MULTIFOCAL LEUKOENCEPHALOPATHY

REACTIONS (2)
  - Condition aggravated [Unknown]
  - Drug ineffective [Unknown]
